FAERS Safety Report 22954471 (Version 2)
Quarter: 2023Q4

REPORT INFORMATION
  Report Type: Report from Study
  Country: CN (occurrence: CN)
  Receive Date: 20230918
  Receipt Date: 20231025
  Transmission Date: 20240109
  Serious: Yes (Death)
  Sender: FDA-Public Use
  Company Number: CN-PFIZER INC-202300233986

PATIENT
  Age: 51 Year
  Sex: Male
  Weight: 75 kg

DRUGS (48)
  1. ELRANATAMAB [Suspect]
     Active Substance: ELRANATAMAB
     Indication: Plasma cell myeloma
     Dosage: 12 MG, ONCE
     Route: 058
     Dates: start: 20230404, end: 20230404
  2. ELRANATAMAB [Suspect]
     Active Substance: ELRANATAMAB
     Dosage: 32 MG, ONCE
     Route: 058
     Dates: start: 20230410, end: 20230410
  3. ELRANATAMAB [Suspect]
     Active Substance: ELRANATAMAB
     Dosage: 76 MG, ONCE
     Route: 058
     Dates: start: 20230414, end: 20230414
  4. ELRANATAMAB [Suspect]
     Active Substance: ELRANATAMAB
     Dosage: 76 MG, ONCE
     Route: 058
     Dates: start: 20230421, end: 20230421
  5. ELRANATAMAB [Suspect]
     Active Substance: ELRANATAMAB
     Dosage: 76 MG, ONCE
     Route: 058
     Dates: start: 20230428, end: 20230428
  6. ELRANATAMAB [Suspect]
     Active Substance: ELRANATAMAB
     Dosage: 76 MG, ONCE
     Route: 058
     Dates: start: 20230508, end: 20230508
  7. ELRANATAMAB [Suspect]
     Active Substance: ELRANATAMAB
     Dosage: 76 MG, ONCE
     Route: 058
     Dates: start: 20230530, end: 20230530
  8. ELRANATAMAB [Suspect]
     Active Substance: ELRANATAMAB
     Dosage: 76 MG, ONCE
     Route: 058
     Dates: start: 20230607, end: 20230607
  9. ELRANATAMAB [Suspect]
     Active Substance: ELRANATAMAB
     Dosage: 76 MG, ONCE
     Route: 058
     Dates: start: 20230614, end: 20230614
  10. DARATUMUMAB [Suspect]
     Active Substance: DARATUMUMAB
     Indication: Plasma cell myeloma
     Dosage: 1800 MG, ONCE
     Route: 058
     Dates: start: 20230421, end: 20230421
  11. DARATUMUMAB [Suspect]
     Active Substance: DARATUMUMAB
     Dosage: 1800 MG, ONCE
     Route: 058
     Dates: start: 20230428, end: 20230428
  12. DARATUMUMAB [Suspect]
     Active Substance: DARATUMUMAB
     Dosage: 1800 MG, ONCE
     Route: 058
     Dates: start: 20230508, end: 20230508
  13. DARATUMUMAB [Suspect]
     Active Substance: DARATUMUMAB
     Dosage: 1800 MG, ONCE
     Route: 058
     Dates: start: 20230530, end: 20230530
  14. DARATUMUMAB [Suspect]
     Active Substance: DARATUMUMAB
     Dosage: 1800 MG, ONCE
     Route: 058
     Dates: start: 20230607, end: 20230607
  15. DARATUMUMAB [Suspect]
     Active Substance: DARATUMUMAB
     Dosage: 1800 MG, ONCE
     Route: 058
     Dates: start: 20230614, end: 20230614
  16. DEXAMETHASONE [Suspect]
     Active Substance: DEXAMETHASONE
     Indication: Plasma cell myeloma
     Dosage: 20 MG, ONCE, INJECTION
     Route: 042
     Dates: start: 20230404, end: 20230404
  17. DEXAMETHASONE [Suspect]
     Active Substance: DEXAMETHASONE
     Dosage: 20 MG, ONCE, INJECTION
     Route: 042
     Dates: start: 20230410, end: 20230410
  18. DEXAMETHASONE [Suspect]
     Active Substance: DEXAMETHASONE
     Dosage: 20 MG, ONCE, INJECTION
     Route: 042
     Dates: start: 20230414, end: 20230414
  19. DEXAMETHASONE [Suspect]
     Active Substance: DEXAMETHASONE
     Dosage: 20 MG, ONCE, INJECTION
     Route: 042
     Dates: start: 20230421, end: 20230421
  20. DEXAMETHASONE [Suspect]
     Active Substance: DEXAMETHASONE
     Dosage: 4 MG, ONCE, INJECTION
     Route: 042
     Dates: start: 20230421, end: 20230421
  21. DEXAMETHASONE [Suspect]
     Active Substance: DEXAMETHASONE
     Dosage: 20 MG, ONCE, INJECTION
     Route: 042
     Dates: start: 20230428, end: 20230428
  22. DEXAMETHASONE [Suspect]
     Active Substance: DEXAMETHASONE
     Dosage: 20 MG, ONCE, INJECTION
     Route: 042
     Dates: start: 20230508, end: 20230508
  23. DEXAMETHASONE [Suspect]
     Active Substance: DEXAMETHASONE
     Dosage: 4 MG, ONCE, INJECTION
     Route: 042
     Dates: start: 20230508, end: 20230508
  24. DEXAMETHASONE [Suspect]
     Active Substance: DEXAMETHASONE
     Dosage: 20 MG, ONCE, INJECTION
     Route: 042
     Dates: start: 20230530, end: 20230530
  25. DEXAMETHASONE [Suspect]
     Active Substance: DEXAMETHASONE
     Dosage: 4 MG, ONCE, INJECTION
     Route: 042
     Dates: start: 20230530, end: 20230530
  26. DEXAMETHASONE [Suspect]
     Active Substance: DEXAMETHASONE
     Dosage: 20 MG, ONCE, INJECTION
     Route: 042
     Dates: start: 20230607, end: 20230607
  27. DEXAMETHASONE [Suspect]
     Active Substance: DEXAMETHASONE
     Dosage: 20 MG, ONCE, INJECTION
     Route: 042
     Dates: start: 20230614, end: 20230614
  28. ACETAMINOPHEN [Suspect]
     Active Substance: ACETAMINOPHEN
     Indication: Plasma cell myeloma
     Dosage: 500 MG, ONCE, COMPOUND, TABLET
     Route: 048
     Dates: start: 20230404, end: 20230404
  29. ACETAMINOPHEN [Suspect]
     Active Substance: ACETAMINOPHEN
     Dosage: 500 MG, ONCE, COMPOUND, TABLET
     Route: 048
     Dates: start: 20230410, end: 20230410
  30. ACETAMINOPHEN [Suspect]
     Active Substance: ACETAMINOPHEN
     Dosage: 500 MG, ONCE, COMPOUND, TABLET
     Route: 048
     Dates: start: 20230414, end: 20230414
  31. ACETAMINOPHEN [Suspect]
     Active Substance: ACETAMINOPHEN
     Dosage: 500 MG, ONCE, COMPOUND, TABLET
     Route: 048
     Dates: start: 20230421, end: 20230421
  32. ACETAMINOPHEN [Suspect]
     Active Substance: ACETAMINOPHEN
     Dosage: 500 MG, ONCE, COMPOUND, TABLET
     Route: 048
     Dates: start: 20230428, end: 20230428
  33. ACETAMINOPHEN [Suspect]
     Active Substance: ACETAMINOPHEN
     Dosage: 500 MG, ONCE, COMPOUND, TABLET
     Route: 048
     Dates: start: 20230508, end: 20230508
  34. ACETAMINOPHEN [Suspect]
     Active Substance: ACETAMINOPHEN
     Dosage: 500 MG, ONCE, COMPOUND, TABLET
     Route: 048
     Dates: start: 20230530, end: 20230530
  35. ACETAMINOPHEN [Suspect]
     Active Substance: ACETAMINOPHEN
     Dosage: 500 MG, ONCE, COMPOUND, TABLET
     Route: 048
     Dates: start: 20230607, end: 20230607
  36. ACETAMINOPHEN [Suspect]
     Active Substance: ACETAMINOPHEN
     Dosage: 500 MG, ONCE, COMPOUND, TABLET
     Route: 048
     Dates: start: 20230614, end: 20230614
  37. DIPHENHYDRAMINE HYDROCHLORIDE [Suspect]
     Active Substance: DIPHENHYDRAMINE HYDROCHLORIDE
     Indication: Plasma cell myeloma
     Dosage: 25 MG, ONCE, TABLET
     Route: 048
     Dates: start: 20230404, end: 20230404
  38. DIPHENHYDRAMINE HYDROCHLORIDE [Suspect]
     Active Substance: DIPHENHYDRAMINE HYDROCHLORIDE
     Dosage: 25 MG, ONCE, TABLET
     Route: 048
     Dates: start: 20230410, end: 20230410
  39. DIPHENHYDRAMINE HYDROCHLORIDE [Suspect]
     Active Substance: DIPHENHYDRAMINE HYDROCHLORIDE
     Dosage: 25 MG, ONCE, TABLET
     Route: 048
     Dates: start: 20230414, end: 20230414
  40. DIPHENHYDRAMINE HYDROCHLORIDE [Suspect]
     Active Substance: DIPHENHYDRAMINE HYDROCHLORIDE
     Dosage: 25 MG, ONCE, TABLET
     Route: 048
     Dates: start: 20230421, end: 20230421
  41. DIPHENHYDRAMINE HYDROCHLORIDE [Suspect]
     Active Substance: DIPHENHYDRAMINE HYDROCHLORIDE
     Dosage: 25 MG, ONCE, TABLET
     Route: 048
     Dates: start: 20230428, end: 20230428
  42. DIPHENHYDRAMINE HYDROCHLORIDE [Suspect]
     Active Substance: DIPHENHYDRAMINE HYDROCHLORIDE
     Dosage: 25 MG, ONCE, TABLET
     Route: 048
     Dates: start: 20230508, end: 20230508
  43. DIPHENHYDRAMINE HYDROCHLORIDE [Suspect]
     Active Substance: DIPHENHYDRAMINE HYDROCHLORIDE
     Dosage: 25 MG, ONCE, TABLET
     Route: 048
     Dates: start: 20230530, end: 20230530
  44. DIPHENHYDRAMINE HYDROCHLORIDE [Suspect]
     Active Substance: DIPHENHYDRAMINE HYDROCHLORIDE
     Dosage: 25 MG, ONCE, TABLET
     Route: 048
     Dates: start: 20230607, end: 20230607
  45. DIPHENHYDRAMINE HYDROCHLORIDE [Suspect]
     Active Substance: DIPHENHYDRAMINE HYDROCHLORIDE
     Dosage: 25 MG, ONCE, TABLET
     Route: 048
     Dates: start: 20230614, end: 20230614
  46. KAI HOU JIAN [Concomitant]
     Indication: Oropharyngeal pain
     Dosage: 1 ML, 3X/DAY (TID)
     Route: 061
     Dates: start: 20230509
  47. POTASSIUM CHLORIDE [Concomitant]
     Active Substance: POTASSIUM CHLORIDE
     Indication: Hypokalaemia
     Dosage: 0.5 G, 3X/DAY, EXTENDED-RELEASE TABLETS
     Route: 048
     Dates: start: 20230607, end: 20230614
  48. POTASSIUM CITRATE [Concomitant]
     Active Substance: POTASSIUM CITRATE
     Indication: Hypokalaemia
     Dosage: 20 ML, ONCE
     Route: 048
     Dates: start: 20230607, end: 20230614

REACTIONS (1)
  - Death [Fatal]

NARRATIVE: CASE EVENT DATE: 20230627
